FAERS Safety Report 19500486 (Version 1)
Quarter: 2021Q3

REPORT INFORMATION
  Report Type: Spontaneous
  Country: CN (occurrence: CN)
  Receive Date: 20210706
  Receipt Date: 20210706
  Transmission Date: 20211014
  Serious: Yes (Hospitalization)
  Sender: FDA-Public Use
  Company Number: CN-BAXTER-2021BAX018548

PATIENT
  Age: 15 Year
  Sex: Female
  Weight: 67 kg

DRUGS (8)
  1. 0.9% SODIUM CHLORIDE INJECTION [Suspect]
     Active Substance: SODIUM CHLORIDE
     Indication: MEDICATION DILUTION
     Dosage: NS 100 ML + VINDESINE SULFATE 4 MG
     Route: 041
     Dates: start: 20210422, end: 20210422
  2. 5% GLUCOSE  INJECTION [Suspect]
     Active Substance: DEXTROSE
     Dosage: GLUCOSE 500 ML + DOXORUBICIN HYDROCHLORIDE LIPOSOME 50 MG
     Route: 041
     Dates: start: 20210423, end: 20210423
  3. VINDESINE SULFATE [Suspect]
     Active Substance: VINDESINE SULFATE
     Indication: BONE CANCER
     Dosage: VINDESINE SULFATE 4 MG + NS 100 ML
     Route: 041
     Dates: start: 20210422, end: 20210422
  4. 0.9% SODIUM CHLORIDE INJECTION [Suspect]
     Active Substance: SODIUM CHLORIDE
     Dosage: NS 500 ML + CYCLOPHOSPHAMIDE 1 G
     Route: 041
     Dates: start: 20210422, end: 20210423
  5. DOXORUBICIN HYDROCHLORIDE LIPOSOME [Suspect]
     Active Substance: DOXORUBICIN HYDROCHLORIDE
     Indication: BONE CANCER
     Dosage: DOXORUBICIN HYDROCHLORIDE LIPOSOME 40 MG + GLUCOSE 500 ML
     Route: 041
     Dates: start: 20210422, end: 20210422
  6. DOXORUBICIN HYDROCHLORIDE LIPOSOME [Suspect]
     Active Substance: DOXORUBICIN HYDROCHLORIDE
     Dosage: DOXORUBICIN HYDROCHLORIDE LIPOSOME 50 MG + GLUCOSE 500 ML
     Route: 041
     Dates: start: 20210423, end: 20210423
  7. ENDOXAN [Suspect]
     Active Substance: CYCLOPHOSPHAMIDE
     Indication: BONE CANCER
     Dosage: CYCLOPHOSPHAMIDE 1 G + NORMAL SALINE (NS) 500 ML
     Route: 041
     Dates: start: 20210422, end: 20210423
  8. 5% GLUCOSE  INJECTION [Suspect]
     Active Substance: DEXTROSE
     Indication: MEDICATION DILUTION
     Dosage: GLUCOSE 500 ML + DOXORUBICIN HYDROCHLORIDE LIPOSOME 40 MG
     Route: 041
     Dates: start: 20210422, end: 20210422

REACTIONS (1)
  - Myelosuppression [Recovering/Resolving]

NARRATIVE: CASE EVENT DATE: 20210501
